FAERS Safety Report 13135190 (Version 3)
Quarter: 2017Q2

REPORT INFORMATION
  Report Type: Spontaneous
  Country: DE (occurrence: DE)
  Receive Date: 20170120
  Receipt Date: 20170509
  Transmission Date: 20170830
  Serious: Yes (Hospitalization)
  Sender: FDA-Public Use
  Company Number: DE-INCYTE CORPORATION-2017IN000269

PATIENT
  Sex: Male
  Weight: 62 kg

DRUGS (3)
  1. JAKAVI [Suspect]
     Active Substance: RUXOLITINIB
     Dosage: 15 MG, BID
     Route: 048
  2. JAKAVI [Suspect]
     Active Substance: RUXOLITINIB
     Indication: PRIMARY MYELOFIBROSIS
     Dosage: 15 MG, BID
     Route: 048
     Dates: start: 20161103, end: 20170111
  3. JAKAVI [Suspect]
     Active Substance: RUXOLITINIB
     Dosage: 15 MG, BID
     Route: 048
     Dates: start: 201701

REACTIONS (5)
  - Blood test abnormal [Not Recovered/Not Resolved]
  - Lacrimal disorder [Recovering/Resolving]
  - Ulcerative keratitis [Recovering/Resolving]
  - Neurotrophic keratopathy [Recovered/Resolved with Sequelae]
  - Corneal scar [Unknown]

NARRATIVE: CASE EVENT DATE: 20161231
